FAERS Safety Report 4742363-3 (Version None)
Quarter: 2005Q3

REPORT INFORMATION
  Report Type: 
  Country: None (occurrence: None)
  Receive Date: 20050808
  Receipt Date: 20050726
  Transmission Date: 20060218
  Serious: Yes (Hospitalization, Other)
  Sender: FDA-Public Use
  Company Number: US_0504115327

PATIENT
  Age: 65 Year
  Sex: Female
  Weight: 68 kg

DRUGS (31)
  1. FORTEO [Suspect]
     Indication: OSTEOPOROSIS
     Dosage: 20 UG DAY
     Dates: start: 20041001
  2. PROPOXYPHENE HCL [Concomitant]
  3. ATENOLOL [Concomitant]
  4. EPOETIN ALFA [Concomitant]
  5. SOTALOL HCL [Concomitant]
  6. ASPIRIN [Concomitant]
  7. CLONAZEPAM [Concomitant]
  8. OXYBUTYNIN CHLORIDE [Concomitant]
  9. PAROXETINE HYDROCHLORIDE [Concomitant]
  10. ZOLPIDEM TARTRATE [Concomitant]
  11. MICROGENICS PROBIOTIC 8 (LACTOBACILLUS ACIDOPHILLUS) [Concomitant]
  12. MULTIVITAMIN [Concomitant]
  13. LANSOPRAZOLE [Concomitant]
  14. METHYLPHENIDATE HCL [Concomitant]
  15. VITAMIN E [Concomitant]
  16. POTASSIUM CHLORIDE [Concomitant]
  17. FUROSEMIDE [Concomitant]
  18. CALCIUM AND VITAMIN D [Concomitant]
  19. VITAMIN B COMPLEX CAP [Concomitant]
  20. CYANOCOBALAMIN [Concomitant]
  21. PROPOXYPHENE HCL [Concomitant]
  22. PROPOXYPHENE NAPSYLATE W/ ACETAMINOPHEN [Concomitant]
  23. SUMATRIPTAN SUCCINATE [Concomitant]
  24. TRAMADOL HCL [Concomitant]
  25. MECLIZINE HYDROCHLORIDE [Concomitant]
  26. FEXOFENADINE HYDROCHLORIDE [Concomitant]
  27. BUTALBITAL [Concomitant]
  28. CODEINE [Concomitant]
  29. HYOSCYAMINE SULFATE [Concomitant]
  30. ACETAMINOPHEN [Concomitant]
  31. FLECAINIDE ACETATE [Concomitant]

REACTIONS (14)
  - ARRHYTHMIA [None]
  - ARTHRALGIA [None]
  - ARTIFICIAL CROWN PROCEDURE [None]
  - BONE PAIN [None]
  - CONDITION AGGRAVATED [None]
  - ENDODONTIC PROCEDURE [None]
  - GASTRIC OUTLET OBSTRUCTION [None]
  - GASTROINTESTINAL DISORDER [None]
  - HAEMATOCRIT INCREASED [None]
  - HAEMOGLOBIN INCREASED [None]
  - HOT FLUSH [None]
  - INTESTINAL OBSTRUCTION [None]
  - MIGRAINE [None]
  - THERAPEUTIC RESPONSE UNEXPECTED [None]
